FAERS Safety Report 17674468 (Version 1)
Quarter: 2020Q2

REPORT INFORMATION
  Report Type: Report from Study
  Country: IT (occurrence: IT)
  Receive Date: 20200416
  Receipt Date: 20200416
  Transmission Date: 20200714
  Serious: Yes (Hospitalization)
  Sender: FDA-Public Use
  Company Number: IT-TEVA-2020-IT-1223652

PATIENT
  Age: 86 Year
  Sex: Female

DRUGS (8)
  1. DIAZEPAM. [Concomitant]
     Active Substance: DIAZEPAM
  2. CARDIOASPIRIN 100 MG COMPRESSE GASTRORESISTENTI [Suspect]
     Active Substance: ASPIRIN
     Indication: ANTIPLATELET THERAPY
     Dosage: 100 MG
     Route: 048
     Dates: start: 20190101, end: 20190904
  3. TELMISARTAN. [Concomitant]
     Active Substance: TELMISARTAN
  4. TICLOPIDINE HYDROCHLORIDE. [Suspect]
     Active Substance: TICLOPIDINE HYDROCHLORIDE
     Indication: ANTIPLATELET THERAPY
     Dosage: 250 MG
     Route: 048
     Dates: start: 20190101, end: 20190904
  5. TORA-DOL 10 MG COMPRESSE RIVESTITE CON FILM [Concomitant]
  6. AMLODIPINE BESILATE [Concomitant]
     Active Substance: AMLODIPINE BESYLATE
  7. MIMPARA 30 MG FILM-COATED TABLETS [Concomitant]
  8. RENVELA 800 MG FILM-COATED TABLETS [Concomitant]

REACTIONS (3)
  - Anaemia [Not Recovered/Not Resolved]
  - Haematemesis [Not Recovered/Not Resolved]
  - Melaena [Not Recovered/Not Resolved]

NARRATIVE: CASE EVENT DATE: 20190904
